FAERS Safety Report 16544946 (Version 2)
Quarter: 2019Q3

REPORT INFORMATION
  Report Type: Spontaneous
  Country: TR (occurrence: TR)
  Receive Date: 20190709
  Receipt Date: 20190715
  Transmission Date: 20191004
  Serious: Yes (Other)
  Sender: FDA-Public Use
  Company Number: TR-PFIZER INC-2019290052

PATIENT
  Age: 54 Year
  Sex: Male

DRUGS (5)
  1. IDARUBICIN HCL [Suspect]
     Active Substance: IDARUBICIN HYDROCHLORIDE
     Indication: ACUTE PROMYELOCYTIC LEUKAEMIA
     Dosage: UNK (FIRST CONSOLIDATION TREATMENT)
     Dates: start: 201410
  2. IDARUBICIN HCL [Suspect]
     Active Substance: IDARUBICIN HYDROCHLORIDE
     Dosage: UNK (THIRD CONSOLIDATION TREATMENT)
  3. MITOXANTRONE [Suspect]
     Active Substance: MITOXANTRONE HYDROCHLORIDE
     Indication: ACUTE PROMYELOCYTIC LEUKAEMIA
     Dosage: UNK (SECOND CONSOLIDATION TREATMENT)
     Dates: start: 201410
  4. TRETINOIN. [Suspect]
     Active Substance: TRETINOIN
     Indication: ACUTE PROMYELOCYTIC LEUKAEMIA
     Dosage: UNK (FIRST CONSOLIDATION TREATMENT)
     Dates: start: 201410
  5. TRETINOIN. [Suspect]
     Active Substance: TRETINOIN
     Dosage: UNK (THIRD CONSOLIDATION TREATMENT)

REACTIONS (2)
  - Myelodysplastic syndrome [Unknown]
  - Second primary malignancy [Unknown]
